FAERS Safety Report 9730574 (Version 1)
Quarter: 2013Q4

REPORT INFORMATION
  Report Type: Spontaneous
  Country: US (occurrence: US)
  Receive Date: 20131202
  Receipt Date: 20131202
  Transmission Date: 20140711
  Serious: No
  Sender: FDA-Public Use
  Company Number: US-AMGEN-USASP2013078107

PATIENT
  Age: 61 Year
  Sex: Female

DRUGS (3)
  1. ENBREL [Suspect]
     Indication: PSORIASIS
     Dosage: 50 MG, QWK
     Route: 065
  2. ENBREL [Suspect]
     Indication: PSORIATIC ARTHROPATHY
  3. METHOTREXATE [Concomitant]
     Dosage: UNK

REACTIONS (8)
  - Arthralgia [Not Recovered/Not Resolved]
  - Joint stiffness [Not Recovered/Not Resolved]
  - Soft tissue injury [Not Recovered/Not Resolved]
  - Gait disturbance [Not Recovered/Not Resolved]
  - Neck pain [Not Recovered/Not Resolved]
  - Back pain [Not Recovered/Not Resolved]
  - Skin papilloma [Not Recovered/Not Resolved]
  - Psoriasis [Not Recovered/Not Resolved]
